FAERS Safety Report 6842943-5 (Version None)
Quarter: 2010Q3

REPORT INFORMATION
  Report Type: 
  Country: None (occurrence: None)
  Receive Date: 20100714
  Receipt Date: 20070808
  Transmission Date: 20110219
  Serious: No
  Sender: FDA-Public Use
  Company Number: US-PFIZER INC-2007067169

PATIENT
  Age: 61 Year
  Sex: Female
  Weight: 66.2 kg

DRUGS (5)
  1. CHANTIX [Suspect]
     Indication: SMOKING CESSATION THERAPY
     Dates: start: 20070721, end: 20070808
  2. ZOCOR [Concomitant]
  3. ZETIA [Concomitant]
  4. ACETYLSALICYLIC ACID [Concomitant]
  5. VALIUM [Concomitant]

REACTIONS (4)
  - ABNORMAL DREAMS [None]
  - HEART RATE INCREASED [None]
  - INSOMNIA [None]
  - NAUSEA [None]
